FAERS Safety Report 7269151-0 (Version None)
Quarter: 2011Q1

REPORT INFORMATION
  Report Type: 
  Country: None (occurrence: None)
  Receive Date: 20110119
  Receipt Date: 20100223
  Transmission Date: 20110831
  Serious: No
  Sender: FDA-Public Use
  Company Number: AEISR201000060

PATIENT
  Age: 7 Year
  Sex: Male

DRUGS (2)
  1. TETANUS TOXOID [Concomitant]
  2. HYPERTET [Suspect]
     Indication: ARTHROPOD BITE
     Dosage: 250 IU; 1X; IM
     Route: 030
     Dates: start: 20100223, end: 20100223

REACTIONS (1)
  - EXPIRED DRUG ADMINISTERED [None]
